FAERS Safety Report 21971372 (Version 2)
Quarter: 2023Q1

REPORT INFORMATION
  Report Type: Spontaneous
  Country: US (occurrence: US)
  Receive Date: 20230209
  Receipt Date: 20230314
  Transmission Date: 20230417
  Serious: Yes (Other)
  Sender: FDA-Public Use
  Company Number: US-BRISTOL-MYERS SQUIBB COMPANY-2023-019371

PATIENT
  Age: 42 Year
  Sex: Female

DRUGS (1)
  1. ZEPOSIA [Suspect]
     Active Substance: OZANIMOD HYDROCHLORIDE
     Indication: Colitis
     Dosage: 1 TIME A DAY
     Route: 048
     Dates: start: 202212

REACTIONS (4)
  - Headache [Unknown]
  - Urinary tract infection [Unknown]
  - Back pain [Unknown]
  - Nephrolithiasis [Unknown]
